FAERS Safety Report 14795306 (Version 2)
Quarter: 2019Q1

REPORT INFORMATION
  Report Type: Spontaneous
  Country: US (occurrence: US)
  Receive Date: 20180423
  Receipt Date: 20190215
  Transmission Date: 20190417
  Serious: Yes (Other)
  Sender: FDA-Public Use
  Company Number: US-ASTRAZENECA-2018SE52374

PATIENT
  Age: 20836 Day
  Sex: Male
  Weight: 123.4 kg

DRUGS (25)
  1. ACIPHEX [Suspect]
     Active Substance: RABEPRAZOLE SODIUM
     Route: 065
  2. DOXEPIN [Concomitant]
     Active Substance: DOXEPIN
  3. FUROSEMIDE. [Concomitant]
     Active Substance: FUROSEMIDE
  4. HYDROMORPHONE [Concomitant]
     Active Substance: HYDROMORPHONE
  5. LISINOPRIL. [Concomitant]
     Active Substance: LISINOPRIL
  6. ROPINIROLE. [Concomitant]
     Active Substance: ROPINIROLE
  7. NEXIUM 24HR [Suspect]
     Active Substance: ESOMEPRAZOLE MAGNESIUM
     Route: 048
  8. PRILOSEC OTC [Suspect]
     Active Substance: OMEPRAZOLE MAGNESIUM
     Route: 048
  9. SPIRONOLACTONE. [Concomitant]
     Active Substance: SPIRONOLACTONE
  10. XIFAXAN [Concomitant]
     Active Substance: RIFAXIMIN
  11. NIASPAN [Concomitant]
     Active Substance: NIACIN
  12. PROTONIX [Suspect]
     Active Substance: PANTOPRAZOLE SODIUM
     Route: 048
     Dates: start: 2008, end: 2016
  13. ALLOPURINOL. [Concomitant]
     Active Substance: ALLOPURINOL
  14. GRALISE [Concomitant]
     Active Substance: GABAPENTIN
  15. NEXIUM [Suspect]
     Active Substance: ESOMEPRAZOLE MAGNESIUM
     Route: 048
     Dates: start: 2008, end: 2016
  16. PREVACID [Suspect]
     Active Substance: LANSOPRAZOLE
     Route: 065
  17. ALFUZOSIN [Concomitant]
     Active Substance: ALFUZOSIN
  18. METOPROLOL. [Concomitant]
     Active Substance: METOPROLOL
  19. SEROQUEL [Concomitant]
     Active Substance: QUETIAPINE FUMARATE
  20. SKELAXIN [Concomitant]
     Active Substance: METAXALONE
  21. TRICOR [Concomitant]
     Active Substance: FENOFIBRATE
  22. NEXIUM [Suspect]
     Active Substance: ESOMEPRAZOLE MAGNESIUM
     Dosage: 40.0MG UNKNOWN
     Route: 048
     Dates: start: 20080918
  23. PRILOSEC [Suspect]
     Active Substance: OMEPRAZOLE MAGNESIUM
     Route: 048
  24. DEXILANT [Suspect]
     Active Substance: DEXLANSOPRAZOLE
     Route: 048
  25. BACLOFEN. [Concomitant]
     Active Substance: BACLOFEN

REACTIONS (5)
  - Chronic kidney disease [Unknown]
  - Renal failure [Unknown]
  - End stage renal disease [Unknown]
  - Tubulointerstitial nephritis [Unknown]
  - Acute kidney injury [Unknown]

NARRATIVE: CASE EVENT DATE: 20161130
